FAERS Safety Report 5931387-6 (Version None)
Quarter: 2008Q4

REPORT INFORMATION
  Report Type: 
  Country: None (occurrence: None)
  Receive Date: 20081009
  Receipt Date: 20080630
  Transmission Date: 20090506
  Serious: Yes (Disabling)
  Sender: FDA-Public Use
  Company Number: PHEH2008US05096

PATIENT
  Age: 78 Year
  Sex: Male

DRUGS (2)
  1. ZOMETA [Suspect]
     Dosage: 4MG EVERY OTHER MONTH, INTRAVENOUS
     Route: 042
  2. TAXOTERE [Concomitant]

REACTIONS (5)
  - BONE DISORDER [None]
  - OSTEOLYSIS [None]
  - PAIN [None]
  - SWELLING [None]
  - WOUND DRAINAGE [None]
